FAERS Safety Report 14240964 (Version 2)
Quarter: 2018Q2

REPORT INFORMATION
  Report Type: Spontaneous
  Country: US (occurrence: US)
  Receive Date: 20171130
  Receipt Date: 20180601
  Transmission Date: 20180711
  Serious: Yes (Hospitalization)
  Sender: FDA-Public Use
  Company Number: US-ACTELION-A-NJ2017-163405

PATIENT
  Age: 56 Year
  Sex: Male

DRUGS (14)
  1. OPSUMIT [Suspect]
     Active Substance: MACITENTAN
     Indication: PULMONARY ARTERIAL HYPERTENSION
     Dosage: 10 MG, QD
     Route: 048
     Dates: start: 20171129, end: 20180101
  2. COLACE [Concomitant]
     Active Substance: DOCUSATE SODIUM
  3. ELIQUIS [Concomitant]
     Active Substance: APIXABAN
  4. SILDENAFIL. [Concomitant]
     Active Substance: SILDENAFIL
  5. NOVOLOG [Concomitant]
     Active Substance: INSULIN ASPART
  6. POTASSIUM [Concomitant]
     Active Substance: POTASSIUM
  7. PREDNISOLONE. [Concomitant]
     Active Substance: PREDNISOLONE
  8. METFORMIN [Concomitant]
     Active Substance: METFORMIN HYDROCHLORIDE
  9. ALBUTEROL. [Concomitant]
     Active Substance: ALBUTEROL
  10. LANTUS [Concomitant]
     Active Substance: INSULIN GLARGINE
  11. SPIRONOLACTONE. [Concomitant]
     Active Substance: SPIRONOLACTONE
  12. DILTIAZEM. [Concomitant]
     Active Substance: DILTIAZEM
  13. SIMVASTATIN. [Concomitant]
     Active Substance: SIMVASTATIN
  14. OXYGEN. [Concomitant]
     Active Substance: OXYGEN
     Dosage: UNK, PRN

REACTIONS (3)
  - Drug dose omission [Unknown]
  - Dyspnoea [Unknown]
  - Pneumonia [Recovered/Resolved]

NARRATIVE: CASE EVENT DATE: 201711
